FAERS Safety Report 24571908 (Version 1)
Quarter: 2024Q4

REPORT INFORMATION
  Report Type: Spontaneous
  Country: ES (occurrence: ES)
  Receive Date: 20241101
  Receipt Date: 20241101
  Transmission Date: 20250115
  Serious: Yes (Other)
  Sender: SAMSUNG BIOEPIS
  Company Number: None

PATIENT
  Age: 50 Year
  Sex: Female

DRUGS (3)
  1. IMRALDI [Suspect]
     Active Substance: ADALIMUMAB
     Indication: Crohn^s disease
     Route: 058
     Dates: start: 20220318, end: 20240508
  2. SPIRAXIN 200 mg FILM-COATED TABLETS, 12 tablets [Concomitant]
     Indication: Product used for unknown indication
     Route: 048
     Dates: start: 20230704
  3. OPTOVITE B12 1,000 MICROGRAMS INJECTABLE SOLUTION, 5 ampoules of 2 ml [Concomitant]
     Indication: Product used for unknown indication
     Dates: start: 20240206

REACTIONS (2)
  - Hepatocellular injury [Recovered/Resolved]
  - Hypertransaminasaemia [Recovering/Resolving]

NARRATIVE: CASE EVENT DATE: 20231026
